FAERS Safety Report 24304592 (Version 1)
Quarter: 2024Q3

REPORT INFORMATION
  Report Type: Other
  Country: US (occurrence: US)
  Receive Date: 20240910
  Receipt Date: 20240910
  Transmission Date: 20241016
  Serious: No
  Sender: SIGMA TAU
  Company Number: US-LEADIANT BIOSCIENCES, INC.-2023STPI000366

PATIENT

DRUGS (1)
  1. MATULANE [Suspect]
     Active Substance: PROCARBAZINE HYDROCHLORIDE
     Indication: Brain neoplasm malignant
     Dosage: 50 MILLIGRAMS, 2 CAPSULES (150MG TOTAL) EVERY NIGHT ON DAYS 8 TO 21 OF EVERY 42 DAY CHEMO CYLCE
     Route: 048
     Dates: start: 20230825

REACTIONS (1)
  - Fatigue [Unknown]
